FAERS Safety Report 6655565-6 (Version None)
Quarter: 2010Q1

REPORT INFORMATION
  Report Type: 
  Country: None (occurrence: None)
  Receive Date: 20100326
  Receipt Date: 20100326
  Transmission Date: 20100710
  Serious: Yes (Hospitalization)
  Sender: FDA-Public Use
  Company Number: None

PATIENT
  Sex: Male
  Weight: 65 kg

DRUGS (8)
  1. CYTARABINE [Suspect]
     Dosage: 70 MG
  2. DAUNORUBICIN HCL [Suspect]
     Dosage: 44 MG
  3. VINCRISTINE [Suspect]
     Dosage: 2 MG
  4. CYCLOPHOSPHAMIDE [Concomitant]
  5. CYTARABINE [Concomitant]
  6. DASATINIB [Concomitant]
  7. DAUNORUBICIN HCL [Concomitant]
  8. METHOTREXATE [Concomitant]

REACTIONS (4)
  - BRAIN HERNIATION [None]
  - GENE MUTATION IDENTIFICATION TEST POSITIVE [None]
  - RESPIRATORY FAILURE [None]
  - SUBARACHNOID HAEMORRHAGE [None]
